FAERS Safety Report 7247534-2 (Version None)
Quarter: 2011Q1

REPORT INFORMATION
  Report Type: 
  Country: None (occurrence: None)
  Receive Date: 20110127
  Receipt Date: 20110117
  Transmission Date: 20110831
  Serious: Yes (Other)
  Sender: FDA-Public Use
  Company Number: PHHY2011CN03925

PATIENT
  Sex: Female
  Weight: 12.5 kg

DRUGS (2)
  1. TACROLIMUS [Suspect]
     Dosage: 5 TO 10 NG/ML
  2. METHYLPREDNISOLONE [Suspect]

REACTIONS (5)
  - JAUNDICE [None]
  - CYTOMEGALOVIRUS INFECTION [None]
  - TRANSPLANT REJECTION [None]
  - ALANINE AMINOTRANSFERASE INCREASED [None]
  - ASPARTATE AMINOTRANSFERASE INCREASED [None]
